FAERS Safety Report 7829459-4 (Version None)
Quarter: 2011Q4

REPORT INFORMATION
  Report Type: 
  Country: None (occurrence: None)
  Receive Date: 20111020
  Receipt Date: 20111006
  Transmission Date: 20120403
  Serious: Yes (Death, Hospitalization, Other)
  Sender: FDA-Public Use
  Company Number: BR-ROCHE-700958

PATIENT
  Sex: Female
  Weight: 70 kg

DRUGS (19)
  1. DRENOL [Concomitant]
  2. AAS INFANTIL [Concomitant]
  3. MABTHERA [Suspect]
     Route: 042
     Dates: start: 20100621, end: 20100705
  4. PREDNISONE [Concomitant]
  5. IBUPROFEN [Concomitant]
  6. METHOTREXATE [Concomitant]
  7. PREDNISONE [Concomitant]
  8. CELEBREX [Concomitant]
  9. ALLEGRA [Concomitant]
  10. METOPROLOL SUCCINATE [Concomitant]
  11. DIPROSPAN [Concomitant]
  12. PREDNISONE [Concomitant]
  13. MABTHERA [Suspect]
     Indication: RHEUMATOID ARTHRITIS
     Dosage: FORM REPORTED AS INFUSION, FREQUENCY REPORTED AS 2 DOSES
     Route: 042
     Dates: start: 20090914, end: 20090928
  14. ARAVA [Concomitant]
  15. CHLOROQUINE DIPHOSPHATE [Concomitant]
  16. CALCIUM CARBONATE [Concomitant]
  17. OS-CAL [Concomitant]
  18. FUROSEMIDE [Concomitant]
  19. ACTEMRA [Suspect]
     Indication: PRODUCT USED FOR UNKNOWN INDICATION
     Route: 042
     Dates: start: 20110401, end: 20110601

REACTIONS (14)
  - HYPERTENSION [None]
  - MALAISE [None]
  - WEIGHT INCREASED [None]
  - GASTROINTESTINAL NECROSIS [None]
  - ABDOMINAL ADHESIONS [None]
  - DRY THROAT [None]
  - PAIN IN EXTREMITY [None]
  - OSTEOPENIA [None]
  - JOINT RANGE OF MOTION DECREASED [None]
  - LYMPHATIC OBSTRUCTION [None]
  - BLOOD PRESSURE INCREASED [None]
  - RESPIRATORY FAILURE [None]
  - PAIN [None]
  - DRUG INEFFECTIVE [None]
